FAERS Safety Report 8350328-8 (Version None)
Quarter: 2012Q2

REPORT INFORMATION
  Report Type: 
  Country: None (occurrence: None)
  Receive Date: 20120510
  Receipt Date: 20120426
  Transmission Date: 20120825
  Serious: Yes (Other)
  Sender: FDA-Public Use
  Company Number: BR-ROCHE-1063828

PATIENT
  Sex: Female
  Weight: 85 kg

DRUGS (3)
  1. LOSARTAN POTASSIUM [Concomitant]
     Indication: PRODUCT USED FOR UNKNOWN INDICATION
  2. MABTHERA [Suspect]
     Indication: RHEUMATOID ARTHRITIS
     Route: 042
     Dates: start: 20110923
  3. MABTHERA [Suspect]
     Route: 042
     Dates: start: 20111007

REACTIONS (1)
  - ARTHROPATHY [None]
